FAERS Safety Report 24696173 (Version 1)
Quarter: 2024Q4

REPORT INFORMATION
  Report Type: Other
  Country: JP (occurrence: JP)
  Receive Date: 20241204
  Receipt Date: 20241204
  Transmission Date: 20250115
  Serious: Yes (Hospitalization, Other)
  Sender: BIONPHARMA INC.
  Company Number: JP-Bion-014406

PATIENT
  Age: 7 Decade
  Sex: Male

DRUGS (12)
  1. AMANTADINE HYDROCHLORIDE [Suspect]
     Active Substance: AMANTADINE HYDROCHLORIDE
     Indication: Orthostatic hypotension
     Dosage: 200MG PER DAY
  2. DROXIDOPA [Concomitant]
     Active Substance: DROXIDOPA
     Indication: Orthostatic hypotension
     Dosage: 100MG PER DAY
  3. RASAGILINE [Concomitant]
     Active Substance: RASAGILINE
     Indication: Parkinson^s disease
  4. CARBIDOPA\ENTACAPONE\LEVODOPA [Concomitant]
     Active Substance: CARBIDOPA\ENTACAPONE\LEVODOPA
     Indication: Parkinson^s disease
  5. RISPERIDONE [Concomitant]
     Active Substance: RISPERIDONE
     Indication: Parkinson^s disease
  6. FENOFIBRATE [Concomitant]
     Active Substance: FENOFIBRATE
     Indication: Dyslipidaemia
  7. AMLODIPINE [Concomitant]
     Active Substance: AMLODIPINE BESYLATE
     Indication: Hypertension
  8. LUBIPROSTONE [Concomitant]
     Active Substance: LUBIPROSTONE
     Indication: Constipation
  9. MAGNESIUM OXIDE [Concomitant]
     Active Substance: MAGNESIUM OXIDE
     Indication: Constipation
  10. MOSAPRIDE [Concomitant]
     Active Substance: MOSAPRIDE
     Indication: Constipation
  11. SENNOSIDES A AND B [Concomitant]
     Active Substance: SENNOSIDES A AND B
     Indication: Constipation
  12. VONOPRAZAN [Concomitant]
     Active Substance: VONOPRAZAN
     Indication: Product used for unknown indication

REACTIONS (5)
  - Drug interaction [Unknown]
  - Drug level increased [Unknown]
  - Toxicity to various agents [Unknown]
  - Delirium [Recovering/Resolving]
  - Generalised tonic-clonic seizure [Recovering/Resolving]
